FAERS Safety Report 20449941 (Version 3)
Quarter: 2022Q3

REPORT INFORMATION
  Report Type: Spontaneous
  Country: US (occurrence: US)
  Receive Date: 20220209
  Receipt Date: 20220729
  Transmission Date: 20221026
  Serious: No
  Sender: FDA-Public Use
  Company Number: US-PFIZER INC-2015031436

PATIENT
  Age: 60 Year
  Sex: Female

DRUGS (4)
  1. RELPAX [Suspect]
     Active Substance: ELETRIPTAN HYDROBROMIDE
     Indication: Migraine with aura
     Dosage: 40 MG, AS NEEDED, (MAY REPEAT IN 2 HOURS IF NECESSARY. MAX DAILY DOSE 80 MG)
     Route: 048
  2. RELPAX [Suspect]
     Active Substance: ELETRIPTAN HYDROBROMIDE
     Indication: Migraine
     Dosage: 80 MG, DAILY
     Route: 048
  3. RELPAX [Suspect]
     Active Substance: ELETRIPTAN HYDROBROMIDE
     Dosage: 40 MG, AS NEEDED (1 TABLET AS NEEDED. MAY REPEAT IN 2 HOURS IF NECESSARY; MAX DAILY DOSE 80MG)
     Route: 048
  4. DETROL LA [Concomitant]
     Active Substance: TOLTERODINE TARTRATE
     Indication: Hypertonic bladder
     Dosage: 4 MG, DAILY (TAKE 1 CAPSULE BY MOUTH DAILY)
     Route: 048

REACTIONS (3)
  - COVID-19 [Unknown]
  - Weight decreased [Unknown]
  - Product dispensing error [Unknown]
